FAERS Safety Report 5059358-5 (Version None)
Quarter: 2006Q3

REPORT INFORMATION
  Report Type: 
  Country: None (occurrence: None)
  Receive Date: 20060718
  Receipt Date: 20060523
  Transmission Date: 20061208
  Serious: No
  Sender: FDA-Public Use
  Company Number: DE200607001732

PATIENT
  Age: 50 Year
  Sex: Male

DRUGS (5)
  1. CYMBALTA [Suspect]
     Indication: PSYCHOTIC DISORDER
     Dosage: 60 MG, DAILY (1/D), ORAL
     Route: 048
  2. MUCOSOLVAN (AMBROXOL HYDROCHLORIDE) [Concomitant]
  3. CAPTOHEXAL (CAPTOPRIL0 [Concomitant]
  4. PANTOZOL /GFR/(PANTOPRAZOLE SODIUM) [Concomitant]
  5. ALLOPURINOL [Concomitant]

REACTIONS (1)
  - GAMMA-GLUTAMYLTRANSFERASE INCREASED [None]
